FAERS Safety Report 19607077 (Version 1)
Quarter: 2021Q3

REPORT INFORMATION
  Report Type: Spontaneous
  Country: PL (occurrence: PL)
  Receive Date: 20210726
  Receipt Date: 20210726
  Transmission Date: 20211014
  Serious: Yes (Hospitalization)
  Sender: FDA-Public Use
  Company Number: PL-JNJFOC-20210749239

PATIENT
  Age: 74 Year

DRUGS (2)
  1. XARELTO [Suspect]
     Active Substance: RIVAROXABAN
     Indication: PRODUCT USED FOR UNKNOWN INDICATION
     Dosage: 15 MG, BID
     Route: 048
     Dates: start: 202003
  2. XARELTO [Suspect]
     Active Substance: RIVAROXABAN
     Dosage: DAILY DOSE 20 MG
     Route: 048
     Dates: start: 202003

REACTIONS (1)
  - Axillary vein thrombosis [Unknown]

NARRATIVE: CASE EVENT DATE: 202003
